FAERS Safety Report 13301740 (Version 1)
Quarter: 2017Q1

REPORT INFORMATION
  Report Type: Spontaneous
  Country: DE (occurrence: DE)
  Receive Date: 20170307
  Receipt Date: 20170307
  Transmission Date: 20170428
  Serious: Yes (Other)
  Sender: FDA-Public Use
  Company Number: DE-DRREDDYS-GER/GER/17/0087538

PATIENT
  Sex: Female

DRUGS (1)
  1. DULOXETIN BETA 30 MG MAGENSAFTRESISTENTE HARTKAPSELN [Suspect]
     Active Substance: DULOXETINE
     Indication: PRODUCT USED FOR UNKNOWN INDICATION
     Route: 048

REACTIONS (2)
  - Tolosa-Hunt syndrome [Not Recovered/Not Resolved]
  - Condition aggravated [Not Recovered/Not Resolved]
